FAERS Safety Report 20333643 (Version 2)
Quarter: 2022Q1

REPORT INFORMATION
  Report Type: Spontaneous
  Country: JP (occurrence: JP)
  Receive Date: 20220113
  Receipt Date: 20220125
  Transmission Date: 20220424
  Serious: Yes (Death)
  Sender: FDA-Public Use
  Company Number: JP-Eisai-202110695_HAL-STS_P_1

PATIENT
  Age: 52 Year
  Sex: Male

DRUGS (1)
  1. HALAVEN [Suspect]
     Active Substance: ERIBULIN MESYLATE
     Indication: Angiosarcoma
     Dosage: DOSE NOT PROVIDED
     Route: 041

REACTIONS (1)
  - Pulmonary alveolar haemorrhage [Fatal]
